FAERS Safety Report 16260899 (Version 1)
Quarter: 2019Q2

REPORT INFORMATION
  Report Type: Spontaneous
  Country: US (occurrence: US)
  Receive Date: 20190501
  Receipt Date: 20190501
  Transmission Date: 20190711
  Serious: Yes (Other)
  Sender: FDA-Public Use
  Company Number: US-NAPPMUNDI-USA-2019-0147015

PATIENT
  Age: 63 Year
  Sex: Female

DRUGS (3)
  1. BUTRANS [Suspect]
     Active Substance: BUPRENORPHINE
     Dosage: 10 MCG/HR, WEEKLY
     Route: 062
  2. BUTRANS [Suspect]
     Active Substance: BUPRENORPHINE
     Indication: PAIN
     Dosage: 5 MCG/HR, WEEKLY
     Route: 062
     Dates: start: 2009
  3. BUTRANS [Suspect]
     Active Substance: BUPRENORPHINE
     Dosage: 20 MCG/HR, WEEKLY
     Route: 062

REACTIONS (10)
  - Cerebrovascular accident [Recovered/Resolved]
  - Myocardial infarction [Recovered/Resolved]
  - Clavicle fracture [Recovered/Resolved]
  - Application site burn [Recovered/Resolved]
  - Application site pruritus [Recovered/Resolved]
  - Foot operation [Recovered/Resolved]
  - Knee operation [Recovered/Resolved]
  - Application site vesicles [Recovered/Resolved]
  - Application site scar [Recovered/Resolved]
  - Product adhesion issue [Unknown]

NARRATIVE: CASE EVENT DATE: 201811
